FAERS Safety Report 14576170 (Version 1)
Quarter: 2018Q1

REPORT INFORMATION
  Report Type: Spontaneous
  Country: ES (occurrence: ES)
  Receive Date: 20180227
  Receipt Date: 20180227
  Transmission Date: 20180509
  Serious: Yes (Death, Hospitalization)
  Sender: FDA-Public Use
  Company Number: ES-SUN PHARMACEUTICAL INDUSTRIES LTD-2018RR-164462

PATIENT
  Age: 85 Year
  Sex: Female

DRUGS (9)
  1. QUETIAPINA (1136A) [Concomitant]
     Active Substance: QUETIAPINE
     Indication: PRODUCT USED FOR UNKNOWN INDICATION
     Dosage: 50 MG CADA 12 HORAS ()
     Route: 065
     Dates: start: 20170312, end: 20170313
  2. PARACETAMOL [Suspect]
     Active Substance: ACETAMINOPHEN
     Indication: PRODUCT USED FOR UNKNOWN INDICATION
     Dosage: 1 GR CADA 8 HORAS
     Route: 065
     Dates: start: 20170312, end: 20170314
  3. OLANZAPINE. [Suspect]
     Active Substance: OLANZAPINE
     Indication: PRODUCT USED FOR UNKNOWN INDICATION
     Dosage: 2,5 MG SI PRECISA
     Route: 065
     Dates: start: 20170312, end: 20170314
  4. FENTANILO (1543A) [Concomitant]
     Indication: PRODUCT USED FOR UNKNOWN INDICATION
     Dosage: 1 UNIDAD ()
     Route: 062
     Dates: start: 20170312, end: 20170316
  5. BEMIPARINA (2817A) [Concomitant]
     Indication: PRODUCT USED FOR UNKNOWN INDICATION
     Dosage: 7500 UI CADA 24 HORAS ()
     Route: 065
     Dates: start: 20170312, end: 20170313
  6. RISPERIDONA (7201A) [Concomitant]
     Indication: PRODUCT USED FOR UNKNOWN INDICATION
     Dosage: 0,5 MG SI PRECISA ()
     Route: 065
     Dates: start: 20170312, end: 20170313
  7. OMEPRAZOLE. [Suspect]
     Active Substance: OMEPRAZOLE
     Indication: PRODUCT USED FOR UNKNOWN INDICATION
     Dosage: 20 MG CADA 24 HORAS
     Route: 065
     Dates: start: 20170313, end: 20170314
  8. PIPERACILINA/TAZOBACTAM [Suspect]
     Active Substance: PIPERACILLIN SODIUM\TAZOBACTAM SODIUM
     Indication: PRODUCT USED FOR UNKNOWN INDICATION
     Dosage: 4 GR CADA 6 HORAS ()
     Route: 065
     Dates: start: 20170312, end: 20170314
  9. PREGABALINA (3897A) [Concomitant]
     Indication: PRODUCT USED FOR UNKNOWN INDICATION
     Dosage: 75 MG CADA 12 HORAS ()
     Route: 065
     Dates: start: 20170312, end: 20170313

REACTIONS (1)
  - Hepatic failure [Fatal]

NARRATIVE: CASE EVENT DATE: 20170313
